FAERS Safety Report 23806506 (Version 3)
Quarter: 2024Q3

REPORT INFORMATION
  Report Type: Spontaneous
  Country: AT (occurrence: AT)
  Receive Date: 20240502
  Receipt Date: 20240709
  Transmission Date: 20241017
  Serious: Yes (Other)
  Sender: JOHNSON AND JOHNSON
  Company Number: AT-JNJFOC-20240474603

PATIENT
  Age: 55 Year
  Sex: Female

DRUGS (3)
  1. DARZALEX [Suspect]
     Active Substance: DARATUMUMAB
     Indication: Plasma cell myeloma
     Route: 065
     Dates: start: 202009
  2. REVLIMID [Suspect]
     Active Substance: LENALIDOMIDE
     Indication: Plasma cell myeloma
     Route: 065
     Dates: start: 202009, end: 2021
  3. DEXAMETHASONE [Suspect]
     Active Substance: DEXAMETHASONE
     Indication: Plasma cell myeloma
     Route: 065
     Dates: start: 202009

REACTIONS (3)
  - Hepatotoxicity [Unknown]
  - Plasma cell myeloma [Unknown]
  - Drug ineffective [Unknown]
